FAERS Safety Report 25520407 (Version 2)
Quarter: 2025Q3

REPORT INFORMATION
  Report Type: Report from Study
  Country: US (occurrence: US)
  Receive Date: 20250704
  Receipt Date: 20250714
  Transmission Date: 20251020
  Serious: Yes (Other)
  Sender: BRISTOL-MYERS SQUIBB COMPANY
  Company Number: US-BRISTOL-MYERS SQUIBB COMPANY-2025-094910

PATIENT
  Age: 85 Year
  Sex: Male
  Weight: 69.4 kg

DRUGS (1)
  1. ORENCIA [Suspect]
     Active Substance: ABATACEPT
     Indication: Rheumatoid arthritis
     Route: 042
     Dates: start: 202506

REACTIONS (7)
  - Tremor [Recovered/Resolved]
  - Hypertension [Unknown]
  - Freezing phenomenon [Recovered/Resolved]
  - Speech disorder [Recovered/Resolved]
  - Hypoacusis [Unknown]
  - Anaphylactic reaction [Recovered/Resolved]
  - Feeling cold [Recovered/Resolved]

NARRATIVE: CASE EVENT DATE: 20250702
